FAERS Safety Report 24784550 (Version 4)
Quarter: 2025Q3

REPORT INFORMATION
  Report Type: Report from Study
  Country: US (occurrence: US)
  Receive Date: 20241227
  Receipt Date: 20250809
  Transmission Date: 20251020
  Serious: Yes (Hospitalization, Other)
  Sender: ALEXION PHARMACEUTICALS
  Company Number: US-AstraZeneca-CH-00772508A

PATIENT
  Sex: Female

DRUGS (1)
  1. ULTOMIRIS [Suspect]
     Active Substance: RAVULIZUMAB-CWVZ
     Indication: Myasthenia gravis

REACTIONS (6)
  - Myasthenia gravis [Not Recovered/Not Resolved]
  - Syncope [Unknown]
  - Feeling abnormal [Unknown]
  - Heart rate decreased [Unknown]
  - Pruritus [Unknown]
  - Memory impairment [Unknown]
